FAERS Safety Report 4557555-6 (Version None)
Quarter: 2005Q1

REPORT INFORMATION
  Report Type: 
  Country: None (occurrence: None)
  Receive Date: 20050120
  Receipt Date: 20050114
  Transmission Date: 20050727
  Serious: Yes (Life-Threatening, Disabling)
  Sender: FDA-Public Use
  Company Number: US-MERCK-0501USA02034

PATIENT
  Age: 62 Year
  Sex: Male

DRUGS (8)
  1. ZOCOR [Suspect]
     Route: 048
     Dates: start: 20040101, end: 20050113
  2. ASPIRIN [Concomitant]
     Route: 065
  3. CLARINEX [Concomitant]
     Route: 065
  4. FOLBEE [Concomitant]
     Route: 065
  5. PLAVIX [Concomitant]
     Route: 065
  6. ATENOLOL [Concomitant]
     Route: 065
  7. LISINOPRIL [Concomitant]
     Route: 065
  8. FOLIC ACID [Concomitant]
     Route: 065

REACTIONS (3)
  - HEPATITIS [None]
  - MYOSITIS [None]
  - RHABDOMYOLYSIS [None]
